FAERS Safety Report 20392311 (Version 1)
Quarter: 2022Q1

REPORT INFORMATION
  Report Type: Report from Study
  Country: BR (occurrence: BR)
  Receive Date: 20220128
  Receipt Date: 20220128
  Transmission Date: 20220423
  Serious: Yes (Other)
  Sender: FDA-Public Use
  Company Number: BR-JNJFOC-20220140662

PATIENT
  Sex: Female
  Weight: 91 kg

DRUGS (1)
  1. INFLIXIMAB [Suspect]
     Active Substance: INFLIXIMAB
     Indication: Ankylosing spondylitis
     Dosage: 100 MG VIAL
     Route: 042
     Dates: end: 202007

REACTIONS (3)
  - Poisoning [Unknown]
  - Off label use [Unknown]
  - Product use issue [Unknown]
